FAERS Safety Report 18263117 (Version 3)
Quarter: 2021Q1

REPORT INFORMATION
  Report Type: Report from Study
  Country: US (occurrence: US)
  Receive Date: 20200914
  Receipt Date: 20210311
  Transmission Date: 20210419
  Serious: Yes (Other)
  Sender: FDA-Public Use
  Company Number: NVSC2020US249483

PATIENT
  Age: 60 Year
  Sex: Male
  Weight: 108.8 kg

DRUGS (7)
  1. TREPROSTINIL. [Suspect]
     Active Substance: TREPROSTINIL
     Dosage: UNK (0.07 UG/KG)
     Route: 041
     Dates: start: 202102
  2. ADEMPAS [Concomitant]
     Active Substance: RIOCIGUAT
     Indication: PRODUCT USED FOR UNKNOWN INDICATION
     Dosage: UNK
     Route: 065
  3. ORENITRAM [Concomitant]
     Active Substance: TREPROSTINIL
     Dosage: 6 MG, TID
     Route: 048
     Dates: start: 202102, end: 202102
  4. ORENITRAM [Concomitant]
     Active Substance: TREPROSTINIL
     Dosage: 12 MG, TID
     Route: 048
     Dates: start: 202102, end: 202102
  5. TREPROSTINIL. [Suspect]
     Active Substance: TREPROSTINIL
     Indication: PULMONARY ARTERIAL HYPERTENSION
     Dosage: 70 NG (70 NG/KG/MIN) (CONTINUOUS)
     Route: 042
     Dates: start: 20200909
  6. ORENITRAM [Concomitant]
     Active Substance: TREPROSTINIL
     Indication: PULMONARY ARTERIAL HYPERTENSION
     Dosage: 17 MG, TID ((1 MG, 5 MG AND 2.5 MG)
     Route: 048
     Dates: start: 20210202
  7. ORENITRAM [Concomitant]
     Active Substance: TREPROSTINIL
     Dosage: 15 MG, TID
     Route: 048
     Dates: start: 202102

REACTIONS (6)
  - Pain in jaw [Unknown]
  - Diarrhoea [Unknown]
  - Diabetes mellitus [Unknown]
  - Syncope [Unknown]
  - Eating disorder [Unknown]
  - Headache [Unknown]

NARRATIVE: CASE EVENT DATE: 202102
